FAERS Safety Report 20997125 (Version 5)
Quarter: 2022Q3

REPORT INFORMATION
  Report Type: Spontaneous
  Country: PT (occurrence: PT)
  Receive Date: 20220623
  Receipt Date: 20220802
  Transmission Date: 20221027
  Serious: Yes (Disabling)
  Sender: FDA-Public Use
  Company Number: None

PATIENT
  Age: 30 Year
  Sex: Female

DRUGS (2)
  1. ETHINYL ESTRADIOL\ETONOGESTREL [Interacting]
     Active Substance: ETHINYL ESTRADIOL\ETONOGESTREL
     Indication: Contraception
     Dosage: UNK, 0.015 MG/24 H + 0.12 MG/24 H
     Route: 067
  2. CLOTRIMAZOLE [Interacting]
     Active Substance: CLOTRIMAZOLE
     Dosage: 1 X DAY AT NIGHT, 10 MG/G
     Route: 067

REACTIONS (3)
  - Vulvovaginal pain [Recovered/Resolved]
  - Complication associated with device [Unknown]
  - Drug interaction [Unknown]
